FAERS Safety Report 10199463 (Version 1)
Quarter: 2014Q2

REPORT INFORMATION
  Report Type: Spontaneous
  Country: JP (occurrence: JP)
  Receive Date: 20140527
  Receipt Date: 20140527
  Transmission Date: 20141212
  Serious: Yes (Hospitalization)
  Sender: FDA-Public Use
  Company Number: JP-UCBSA-121401

PATIENT
  Age: 59 Year
  Sex: Male

DRUGS (1)
  1. E KEPPRA [Suspect]
     Route: 048
     Dates: start: 201210, end: 201211

REACTIONS (1)
  - Drug eruption [Unknown]
